FAERS Safety Report 12171479 (Version 1)
Quarter: 2016Q1

REPORT INFORMATION
  Report Type: Spontaneous
  Country: US (occurrence: None)
  Receive Date: 20160310
  Receipt Date: 20160310
  Transmission Date: 20160526
  Serious: Yes (Other)
  Sender: FDA-Public Use
  Company Number: None

PATIENT
  Age: 53 Year
  Sex: Female

DRUGS (1)
  1. CIMZIA [Suspect]
     Active Substance: CERTOLIZUMAB PEGOL
     Indication: GASTROINTESTINAL DISORDER
     Dosage: EVERY 2 WEEKS
     Route: 058

REACTIONS (3)
  - Deep vein thrombosis [None]
  - Fungal infection [None]
  - Pancreatic cyst [None]
